FAERS Safety Report 24068311 (Version 1)
Quarter: 2024Q3

REPORT INFORMATION
  Report Type: Report from Study
  Country: JP (occurrence: JP)
  Receive Date: 20240710
  Receipt Date: 20240710
  Transmission Date: 20241017
  Serious: No
  Sender: ROCHE
  Company Number: JP-CHUGAI-2024008644

PATIENT
  Age: 78 Year
  Sex: Male

DRUGS (7)
  1. VABYSMO [Suspect]
     Active Substance: FARICIMAB\FARICIMAB-SVOA
     Indication: Age-related macular degeneration
     Dosage: 6 MILLIGRAM, RIGHT EYE
     Route: 050
     Dates: start: 20230222, end: 20230222
  2. VABYSMO [Suspect]
     Active Substance: FARICIMAB\FARICIMAB-SVOA
     Dosage: 6 MILLIGRAM, RIGHT EYE
     Route: 050
     Dates: start: 20230323, end: 20230323
  3. VABYSMO [Suspect]
     Active Substance: FARICIMAB\FARICIMAB-SVOA
     Dosage: 6 MILLIGRAM, RIGHT EYE
     Route: 050
     Dates: start: 20230421, end: 20230421
  4. VABYSMO [Suspect]
     Active Substance: FARICIMAB\FARICIMAB-SVOA
     Dosage: 6 MILLIGRAM, RIGHT EYE
     Route: 050
     Dates: start: 20230524, end: 20230524
  5. VABYSMO [Suspect]
     Active Substance: FARICIMAB\FARICIMAB-SVOA
     Dosage: 6 MILLIGRAM, RIGHT EYE
     Route: 050
     Dates: start: 20230724, end: 20230724
  6. VABYSMO [Suspect]
     Active Substance: FARICIMAB\FARICIMAB-SVOA
     Dosage: 6 MILLIGRAM, RIGHT EYE
     Route: 050
     Dates: start: 20231025, end: 20231025
  7. VABYSMO [Suspect]
     Active Substance: FARICIMAB\FARICIMAB-SVOA
     Dosage: 6 MILLIGRAM, RIGHT EYE
     Route: 050
     Dates: start: 20231215, end: 20231215

REACTIONS (2)
  - Drug ineffective [Unknown]
  - No adverse event [Unknown]
